FAERS Safety Report 9162948 (Version 1)
Quarter: 2012Q4

REPORT INFORMATION
  Report Type: 
  Country: US (occurrence: US)
  Receive Date: 20121219
  Receipt Date: 20121219
  Transmission Date: 20130627
  Serious: Yes (Hospitalization, Disabling, Other)
  Sender: FDA-Public Use
  Company Number: US-RB-047737-12

PATIENT
  Age: 45 Year
  Sex: Male

DRUGS (2)
  1. SUBOXONE TABLET [Suspect]
     Indication: DRUG DEPENDENCE
     Dosage: 12-16 mg/daily
     Route: 060
     Dates: end: 20080122
  2. UNSPECIFIED BLOOD PRESSURE MEDICATION [Concomitant]
     Indication: HYPERTENSION
     Dosage: Dosing details unknown
     Route: 065

REACTIONS (4)
  - Disability [Not Recovered/Not Resolved]
  - Neck injury [Recovered/Resolved]
  - Road traffic accident [Recovered/Resolved]
  - Wrong technique in drug usage process [Recovered/Resolved]
